FAERS Safety Report 7014761-9 (Version None)
Quarter: 2010Q3

REPORT INFORMATION
  Report Type: 
  Country: None (occurrence: None)
  Receive Date: 20100927
  Receipt Date: 20100920
  Transmission Date: 20110219
  Serious: Yes (Death, Other)
  Sender: FDA-Public Use
  Company Number: CH-ROCHE-728832

PATIENT

DRUGS (10)
  1. MYCOPHENOLATE MOFETIL [Suspect]
     Dosage: FROM DAY 0 WITH THE TARGET TROUGH CONCENTRATION ABOVE 2 UG/ML.
     Route: 065
  2. ATG-FRESENIUS [Suspect]
     Dosage: PERI-OPERATIVELY. SINGLE HIGH DOSE..
     Route: 065
  3. ATG-FRESENIUS [Suspect]
     Dosage: DURING THE CONSECUTIVE 4 DAYS.
     Route: 065
  4. CYCLOSPORINE [Suspect]
     Dosage: DOSE: ON DAY 3-  2X 300 MG/DAY WITH DOSE ADJUSTMENT ACCORDING TO THE TARGET.
     Route: 065
  5. METHYLPREDNISOLONE [Suspect]
     Dosage: FROM DAYS 0 TO 4.
     Route: 042
  6. PREDNISOLONE [Suspect]
     Dosage: FROM DAY 5.
     Route: 065
  7. PREDNISOLONE [Suspect]
     Dosage: FORM DAY 15, THE DOSE WAS REDUCED BY 10 MG EVERY TWO WEEKS UNTIL 30 MG/DAY.
     Route: 065
  8. PREDNISOLONE [Suspect]
     Dosage: THE DOSE WAS REDUCED  BY 5 MG EVERY 2 WEEKS UNTIL 15 MG/DAY.
     Route: 065
  9. PREDNISOLONE [Suspect]
     Dosage: THEREAFTER BY 2.5 MG UNTIL 0.1 MG/KG/DAY, WHICH WAS KEPT AS MAINTENANCE THERAPY UNTIL 6 MONTHS
     Route: 065
  10. SULFAMETHOXAZOLE AND TRIMETHOPRIM [Concomitant]
     Dosage: DURING 6 MONTHS.

REACTIONS (11)
  - ABDOMINAL HERNIA [None]
  - CARDIAC FAILURE CONGESTIVE [None]
  - CHOLANGITIS [None]
  - CHOLANGITIS SUPPURATIVE [None]
  - CYTOMEGALOVIRUS INFECTION [None]
  - GALLBLADDER POLYP [None]
  - LYMPHOCELE [None]
  - POST PROCEDURAL HAEMORRHAGE [None]
  - URETERAL NECROSIS [None]
  - URETERIC STENOSIS [None]
  - UROSEPSIS [None]
